FAERS Safety Report 16899654 (Version 2)
Quarter: 2019Q4

REPORT INFORMATION
  Report Type: Spontaneous
  Country: DK (occurrence: DK)
  Receive Date: 20191009
  Receipt Date: 20191209
  Transmission Date: 20200122
  Serious: Yes (Other)
  Sender: FDA-Public Use
  Company Number: DK-PFIZER INC-2019427275

PATIENT
  Sex: Male

DRUGS (3)
  1. LORAZEPAM. [Suspect]
     Active Substance: LORAZEPAM
     Indication: ANXIETY
     Dosage: UNK
     Route: 048
  2. BUPRENORPHINE. [Suspect]
     Active Substance: BUPRENORPHINE
     Indication: SCHIZOPHRENIA
     Dosage: UNK
  3. CISORDINOL [Concomitant]
     Active Substance: ZUCLOPENTHIXOL
     Dosage: UNK
     Dates: start: 20070726, end: 201010

REACTIONS (13)
  - Gingivitis [Unknown]
  - Disease recurrence [Unknown]
  - Tooth loss [Unknown]
  - Dry mouth [Unknown]
  - Tooth discolouration [Unknown]
  - Chest pain [Unknown]
  - Pain in jaw [Unknown]
  - Tooth infection [Unknown]
  - Melanocytic naevus [Not Recovered/Not Resolved]
  - Fungal skin infection [Unknown]
  - Headache [Unknown]
  - Constipation [Unknown]
  - Toothache [Unknown]

NARRATIVE: CASE EVENT DATE: 201612
